FAERS Safety Report 5009995-9 (Version None)
Quarter: 2006Q2

REPORT INFORMATION
  Report Type: 
  Country: None (occurrence: None)
  Receive Date: 20060522
  Receipt Date: 20060511
  Transmission Date: 20061013
  Serious: No
  Sender: FDA-Public Use
  Company Number: E2090-00006-SPO-JP

PATIENT
  Age: 76 Year
  Sex: Female

DRUGS (2)
  1. ZONISAMIDE [Suspect]
     Indication: CONVULSION PROPHYLAXIS
     Dosage: ORAL
     Route: 048
     Dates: start: 20060211, end: 20060309
  2. DEPAKENE [Concomitant]

REACTIONS (1)
  - GRANULOCYTE COUNT DECREASED [None]
